FAERS Safety Report 18097579 (Version 1)
Quarter: 2020Q3

REPORT INFORMATION
  Report Type: Spontaneous
  Country: US (occurrence: US)
  Receive Date: 20200730
  Receipt Date: 20200730
  Transmission Date: 20201103
  Serious: Yes (Death, Hospitalization, Other)
  Sender: FDA-Public Use
  Company Number: US-AUROBINDO-AUR-APL-2020-036957

PATIENT
  Age: 28 Year
  Sex: Female

DRUGS (3)
  1. VALDECOXIB [Suspect]
     Active Substance: VALDECOXIB
     Indication: CONTUSION
     Dosage: 10 MILLIGRAM, DAILY (DURING DAYS 76?139)
     Route: 065
  2. FLEXERIL [Concomitant]
     Active Substance: CYCLOBENZAPRINE HYDROCHLORIDE
     Indication: PRODUCT USED FOR UNKNOWN INDICATION
     Dosage: UNK
     Route: 065
  3. IBUPROFEN. [Suspect]
     Active Substance: IBUPROFEN
     Indication: CONTUSION
     Dosage: 2400 MILLIGRAM, DAILY (DURING DAYS 0?19)
     Route: 065

REACTIONS (2)
  - Hypertension [Unknown]
  - Renal failure [Fatal]
